FAERS Safety Report 25839465 (Version 1)
Quarter: 2025Q3

REPORT INFORMATION
  Report Type: Spontaneous
  Country: US (occurrence: US)
  Receive Date: 20250924
  Receipt Date: 20250924
  Transmission Date: 20251021
  Serious: No
  Sender: ELI LILLY AND COMPANY
  Company Number: US-ELI_LILLY_AND_COMPANY-US202509021798

PATIENT
  Age: 28 Year
  Sex: Female

DRUGS (7)
  1. MOUNJARO [Suspect]
     Active Substance: TIRZEPATIDE
     Indication: Type 2 diabetes mellitus
     Dosage: 15 MG, WEEKLY (1/W)
     Route: 065
  2. MOUNJARO [Suspect]
     Active Substance: TIRZEPATIDE
     Indication: Type 2 diabetes mellitus
     Dosage: 15 MG, WEEKLY (1/W)
     Route: 065
  3. MOUNJARO [Suspect]
     Active Substance: TIRZEPATIDE
     Indication: Type 2 diabetes mellitus
     Dosage: 15 MG, WEEKLY (1/W)
     Route: 065
  4. MOUNJARO [Suspect]
     Active Substance: TIRZEPATIDE
     Indication: Type 2 diabetes mellitus
     Dosage: 15 MG, WEEKLY (1/W)
     Route: 065
  5. LEXAPRO [Concomitant]
     Active Substance: ESCITALOPRAM OXALATE
     Indication: Depression
  6. LEXAPRO [Concomitant]
     Active Substance: ESCITALOPRAM OXALATE
     Indication: Anxiety
  7. TRILEPTAL [Concomitant]
     Active Substance: OXCARBAZEPINE
     Indication: Affective disorder

REACTIONS (2)
  - Incorrect dose administered [Unknown]
  - Injection site mass [Recovered/Resolved]

NARRATIVE: CASE EVENT DATE: 20250921
